FAERS Safety Report 16705487 (Version 2)
Quarter: 2019Q3

REPORT INFORMATION
  Report Type: Spontaneous
  Country: MX (occurrence: MX)
  Receive Date: 20190815
  Receipt Date: 20190819
  Transmission Date: 20191004
  Serious: No
  Sender: FDA-Public Use
  Company Number: MX-JAZZ-2019-MX-011030

PATIENT
  Age: 1 Year
  Sex: Male

DRUGS (10)
  1. IFOSFAMIDE. [Suspect]
     Active Substance: IFOSFAMIDE
     Indication: NATURAL KILLER-CELL LEUKAEMIA
     Dosage: 2,000 MG/M2/DAY IN 1 H ON DAYS 2-4
  2. IFOSFAMIDE. [Suspect]
     Active Substance: IFOSFAMIDE
     Dosage: 1500 MG/M2/DAY IN 1 H ON DAYS 2-4
  3. DEXAMETHASONE. [Suspect]
     Active Substance: DEXAMETHASONE
     Dosage: 40 MG/M2/DOSE EVERY 8 H ON DAYS 2-4
     Route: 042
  4. MESNA. [Suspect]
     Active Substance: MESNA
     Indication: NATURAL KILLER-CELL LEUKAEMIA
     Dosage: 500 MG/M2 EVERY 6 H
     Route: 042
  5. METHOTREXATE. [Suspect]
     Active Substance: METHOTREXATE
     Indication: NATURAL KILLER-CELL LEUKAEMIA
     Dosage: 5,000 MG/M2/DAY, 24 H ON DAY ONE
     Route: 042
  6. DEXAMETHASONE. [Suspect]
     Active Substance: DEXAMETHASONE
     Indication: NATURAL KILLER-CELL LEUKAEMIA
     Dosage: 40 MG/M2/DOSE EVERY 8 H FOR 12 DOSES
     Route: 042
  7. FOLINIC ACID [Suspect]
     Active Substance: LEUCOVORIN
     Indication: NATURAL KILLER-CELL LEUKAEMIA
     Dosage: 15 MG/M2/DOSE, STARTING AT HOUR 36 OF METHOTREXATE FOR FIVE DOSES
     Route: 042
  8. ASPARAGINASE [Suspect]
     Active Substance: ASPARAGINASE
     Indication: NATURAL KILLER-CELL LEUKAEMIA
     Dosage: 6,000 U/M2 ON DAYS 8,10,12,14,16,18 AND 20
  9. ETOPOSIDE. [Suspect]
     Active Substance: ETOPOSIDE
     Indication: NATURAL KILLER-CELL LEUKAEMIA
     Dosage: 200 MG/M2/DAY IN 3 H ON DAYS 2-4
     Route: 042
  10. ETOPOSIDE. [Suspect]
     Active Substance: ETOPOSIDE
     Dosage: 100 MG/M2/DAY IN 3 H ON DAYS 2-4

REACTIONS (1)
  - No adverse event [Unknown]
